FAERS Safety Report 9416541 (Version 1)
Quarter: 2013Q3

REPORT INFORMATION
  Report Type: Spontaneous
  Country: CN (occurrence: CN)
  Receive Date: 20130724
  Receipt Date: 20130724
  Transmission Date: 20140515
  Serious: Yes (Hospitalization)
  Sender: FDA-Public Use
  Company Number: CN-JNJFOC-20130710523

PATIENT
  Sex: Male

DRUGS (2)
  1. XARELTO [Suspect]
     Indication: KNEE OPERATION
     Route: 048
     Dates: start: 20130620, end: 20130621
  2. XARELTO [Suspect]
     Indication: THROMBOSIS PROPHYLAXIS
     Route: 048
     Dates: start: 20130620, end: 20130621

REACTIONS (5)
  - Ecchymosis [Recovering/Resolving]
  - Limb discomfort [Unknown]
  - Skin induration [Unknown]
  - Ecchymosis [Unknown]
  - Local swelling [Unknown]
